FAERS Safety Report 8591985-0 (Version None)
Quarter: 2012Q3

REPORT INFORMATION
  Report Type: 
  Country: None (occurrence: None)
  Receive Date: 20120814
  Receipt Date: 20120806
  Transmission Date: 20120928
  Serious: Yes (Other)
  Sender: FDA-Public Use
  Company Number: US-SANOFI-AVENTIS-2012SA056428

PATIENT
  Sex: Male

DRUGS (1)
  1. ALLEGRA [Suspect]
     Route: 058

REACTIONS (2)
  - STENT PLACEMENT [None]
  - BLOOD GLUCOSE INCREASED [None]
